FAERS Safety Report 16938477 (Version 1)
Quarter: 2019Q4

REPORT INFORMATION
  Report Type: Spontaneous
  Country: US (occurrence: US)
  Receive Date: 20190828
  Receipt Date: 20190828
  Transmission Date: 20200122
  Serious: No
  Sender: FDA-Public Use
  Company Number: None

PATIENT
  Age: 75 Year
  Sex: Male
  Weight: 79.38 kg

DRUGS (4)
  1. MEKINIST [Suspect]
     Active Substance: TRAMETINIB DIMETHYL SULFOXIDE
     Indication: BRAF GENE MUTATION
     Route: 048
     Dates: start: 20190427, end: 20190701
  2. LOVASTATIN. [Concomitant]
     Active Substance: LOVASTATIN
  3. MEKINIST [Suspect]
     Active Substance: TRAMETINIB DIMETHYL SULFOXIDE
     Indication: MALIGNANT MELANOMA
     Route: 048
     Dates: start: 20190427, end: 20190701
  4. TAFINLAR [Suspect]
     Active Substance: DABRAFENIB MESYLATE

REACTIONS (9)
  - Pyrexia [None]
  - Chills [None]
  - Hypophagia [None]
  - Weight decreased [None]
  - Therapy cessation [None]
  - Vomiting [None]
  - Night sweats [None]
  - Retching [None]
  - Tremor [None]

NARRATIVE: CASE EVENT DATE: 20190512
